FAERS Safety Report 21577964 (Version 1)
Quarter: 2022Q4

REPORT INFORMATION
  Report Type: Spontaneous
  Country: DE (occurrence: DE)
  Receive Date: 20221110
  Receipt Date: 20221110
  Transmission Date: 20230113
  Serious: Yes (Other)
  Sender: FDA-Public Use
  Company Number: DE-MYLANLABS-2022M1124340

PATIENT
  Age: 56 Year
  Sex: Male

DRUGS (6)
  1. FLUOROURACIL [Suspect]
     Active Substance: FLUOROURACIL
     Indication: Neuroendocrine tumour
     Dosage: UNK, CYCLE (ADMINISTERED UNDER THE FOLFOX AND FOLFIRI REGIMEN)
     Route: 065
  2. LEUCOVORIN [Suspect]
     Active Substance: LEUCOVORIN
     Indication: Neuroendocrine tumour
     Dosage: UNK, CYCLE (ADMINISTERED UNDER THE FOLFOX AND FOLFIRI REGIMEN)
     Route: 065
  3. OXALIPLATIN [Suspect]
     Active Substance: OXALIPLATIN
     Indication: Neuroendocrine tumour
     Dosage: UNK, CYCLE (ADMINISTERED UNDER THE FOLFOX REGIMEN)
     Route: 065
  4. CARBOPLATIN [Suspect]
     Active Substance: CARBOPLATIN
     Indication: Neuroendocrine tumour
     Dosage: UNK, CYCLE
     Route: 065
  5. ETOPOSIDE [Suspect]
     Active Substance: ETOPOSIDE
     Indication: Neuroendocrine tumour
     Dosage: UNK, CYCLE
     Route: 065
  6. IRINOTECAN [Suspect]
     Active Substance: IRINOTECAN
     Indication: Neuroendocrine tumour
     Dosage: UNK, CYCLE (ADMINISTERED UNDER THE FOLFIRI REGIMEN)
     Route: 065

REACTIONS (2)
  - Drug ineffective [Unknown]
  - Disease progression [Unknown]
